FAERS Safety Report 15727997 (Version 2)
Quarter: 2018Q4

REPORT INFORMATION
  Report Type: Spontaneous
  Country: US (occurrence: US)
  Receive Date: 20181217
  Receipt Date: 20181228
  Transmission Date: 20190205
  Serious: Yes (Other)
  Sender: FDA-Public Use
  Company Number: US-TEVA-2018-US-988358

PATIENT
  Sex: Female

DRUGS (1)
  1. ATENOLOL TABLETS [Suspect]
     Active Substance: ATENOLOL
     Route: 065

REACTIONS (1)
  - Autoimmune disorder [Unknown]
